FAERS Safety Report 5862803-6 (Version None)
Quarter: 2008Q3

REPORT INFORMATION
  Report Type: 
  Country: None (occurrence: None)
  Receive Date: 20080828
  Receipt Date: 20080819
  Transmission Date: 20090109
  Serious: Yes (Hospitalization, Other)
  Sender: FDA-Public Use
  Company Number: US-WYE-H04071408

PATIENT
  Sex: Male

DRUGS (19)
  1. RAPAMUNE [Suspect]
     Indication: PROPHYLAXIS AGAINST TRANSPLANT REJECTION
     Dosage: FROM 0.5 MG TO 2 MG AND 5 MG DAILY
     Route: 048
     Dates: start: 20071220, end: 20080529
  2. RAPAMUNE [Suspect]
     Dosage: UNSPECIFIED WEANING DOSE
     Route: 048
     Dates: start: 20080530, end: 20080601
  3. LASIX [Concomitant]
     Dosage: UNSPECIFIED
     Dates: start: 20080201
  4. NEXIUM [Concomitant]
     Dosage: UNSPECIFIED
     Dates: start: 20070601, end: 20070906
  5. NEXIUM [Concomitant]
     Route: 048
     Dates: start: 20070907, end: 20080501
  6. POTASSIUM CHLORIDE [Concomitant]
  7. COREG [Concomitant]
     Indication: CARDIAC FAILURE CONGESTIVE
  8. OS-CAL + D [Concomitant]
     Dosage: UNSPECIFIED
     Route: 048
     Dates: end: 20080723
  9. OS-CAL + D [Concomitant]
     Route: 048
     Dates: start: 20080724
  10. MAGNESIUM SULFATE [Concomitant]
     Route: 048
     Dates: start: 20080311
  11. ASCORBIC ACID/ERGOCALCIFEROL/FOLIC ACID/NICOTINAMIDE/PANTHENOL/RETINOL [Concomitant]
     Dosage: UNSPECIFIED
     Route: 048
     Dates: end: 20080723
  12. ASCORBIC ACID/ERGOCALCIFEROL/FOLIC ACID/NICOTINAMIDE/PANTHENOL/RETINOL [Concomitant]
     Dosage: ^1 PILL QD^
     Route: 048
     Dates: start: 20080724
  13. MECLIZINE HCL [Concomitant]
     Indication: DIZZINESS
  14. PROTONIX [Concomitant]
     Dosage: UNSPECIFIED
     Dates: start: 20080501, end: 20080630
  15. LANOXIN [Concomitant]
     Indication: CARDIAC FAILURE CONGESTIVE
     Route: 048
     Dates: start: 20080311
  16. ACETYLSALICYLIC ACID SRT [Concomitant]
     Route: 048
     Dates: start: 20080311
  17. PREDNISONE TAB [Concomitant]
     Dosage: UNSPECIFIED
     Dates: start: 20070601, end: 20080311
  18. PREDNISONE TAB [Concomitant]
     Route: 048
     Dates: start: 20080312
  19. LISINOPRIL [Concomitant]
     Indication: CARDIAC FAILURE CONGESTIVE
     Route: 048
     Dates: start: 20080311

REACTIONS (15)
  - ABDOMINAL PAIN UPPER [None]
  - AGGRESSION [None]
  - AMNESIA [None]
  - ATRIAL FIBRILLATION [None]
  - CHEST PAIN [None]
  - CONFUSIONAL STATE [None]
  - CONVULSION [None]
  - DEAFNESS [None]
  - DISORIENTATION [None]
  - DYSARTHRIA [None]
  - EMBOLIC STROKE [None]
  - IMMUNOSUPPRESSANT DRUG LEVEL INCREASED [None]
  - MYOCARDIAL INFARCTION [None]
  - TRANSIENT ISCHAEMIC ATTACK [None]
  - TREMOR [None]
